FAERS Safety Report 10142253 (Version 1)
Quarter: 2014Q2

REPORT INFORMATION
  Report Type: Spontaneous
  Country: FR (occurrence: FR)
  Receive Date: 20140429
  Receipt Date: 20140429
  Transmission Date: 20141212
  Serious: Yes (Hospitalization)
  Sender: FDA-Public Use
  Company Number: PHHY2014FR050310

PATIENT
  Age: 55 Year
  Sex: Male

DRUGS (5)
  1. DOXYCYCLINE SANDOZ [Suspect]
     Dosage: 100 MG, UNK
     Route: 048
     Dates: start: 20080414, end: 20080421
  2. VANCOMYCINE MERCK [Suspect]
     Dosage: 500 MG, UNK
     Route: 041
     Dates: start: 20080414, end: 20080429
  3. MINOCYCLINE BIOGARAN [Suspect]
     Dosage: 100 MG, UNK
     Route: 048
     Dates: start: 20080421, end: 20080425
  4. LOVENOX [Concomitant]
     Dosage: UNK UKN, UNK
     Route: 065
     Dates: start: 20080414, end: 20080422
  5. GLUCIDION [Concomitant]
     Dosage: UNK UKN, UNK
     Route: 041

REACTIONS (1)
  - Drug reaction with eosinophilia and systemic symptoms [Recovered/Resolved]
